FAERS Safety Report 11636184 (Version 1)
Quarter: 2015Q4

REPORT INFORMATION
  Report Type: Spontaneous
  Country: US (occurrence: None)
  Receive Date: 20151015
  Receipt Date: 20151015
  Transmission Date: 20160304
  Serious: No
  Sender: FDA-Public Use
  Company Number: None

PATIENT
  Age: 54 Year
  Sex: Female
  Weight: 50.8 kg

DRUGS (4)
  1. CLONAZEPAM. [Suspect]
     Active Substance: CLONAZEPAM
     Indication: PARAESTHESIA
     Dosage: .5 MG 1 PILL TWICE DAILY BY MOUTH
     Route: 048
     Dates: start: 20150515, end: 20150522
  2. ATORVASTATIN [Concomitant]
     Active Substance: ATORVASTATIN
  3. CLONAZEPAM. [Suspect]
     Active Substance: CLONAZEPAM
     Indication: HYPOAESTHESIA
     Dosage: .5 MG 1 PILL TWICE DAILY BY MOUTH
     Route: 048
     Dates: start: 20150515, end: 20150522
  4. TYLENOL PM [Concomitant]
     Active Substance: ACETAMINOPHEN\DIPHENHYDRAMINE

REACTIONS (6)
  - Disease recurrence [None]
  - Hypoaesthesia [None]
  - Paraesthesia [None]
  - Product quality issue [None]
  - Product formulation issue [None]
  - Product substitution issue [None]

NARRATIVE: CASE EVENT DATE: 20150515
